FAERS Safety Report 11073661 (Version 1)
Quarter: 2015Q2

REPORT INFORMATION
  Report Type: Spontaneous
  Country: BE (occurrence: BE)
  Receive Date: 20150428
  Receipt Date: 20150428
  Transmission Date: 20150821
  Serious: Yes (Hospitalization)
  Sender: FDA-Public Use
  Company Number: BE-PFIZER INC-2015143373

PATIENT
  Age: 41 Year
  Sex: Female

DRUGS (14)
  1. AMLODIPINE BESILATE [Suspect]
     Active Substance: AMLODIPINE BESYLATE
     Dosage: 10 MG, 1X/DAY
  2. SIMVASTATIN. [Interacting]
     Active Substance: SIMVASTATIN
     Dosage: 20 MG, 1X/DAY
  3. BISOPROLOL [Concomitant]
     Active Substance: BISOPROLOL
     Dosage: 10 MG, 1X/DAY
  4. IRBESARTAN. [Concomitant]
     Active Substance: IRBESARTAN
     Dosage: 300 MG, 1X/DAY
  5. GENTAMICIN. [Concomitant]
     Active Substance: GENTAMICIN
     Indication: PERITONITIS
     Dosage: 80 MG, SINGLE
  6. VANCOMYCIN [Concomitant]
     Active Substance: VANCOMYCIN
     Indication: PERITONITIS
     Dosage: 2,000 MG/3D
  7. HYDROXYCHLOROQUINE [Concomitant]
     Active Substance: HYDROXYCHLOROQUINE
     Dosage: 200 MG, 2X/DAY
  8. CALCITRIOL. [Concomitant]
     Active Substance: CALCITRIOL
     Dosage: 0.25 ?G, THREE TIMES A WEEK
  9. CALCIUM CARBONATE. [Concomitant]
     Active Substance: CALCIUM CARBONATE
     Dosage: 1 G, 2X/DAY
  10. MYCOPHENOLATE MOFETIL. [Concomitant]
     Active Substance: MYCOPHENOLATE MOFETIL
     Dosage: 500 MG, 1X/DAY
  11. SEVELAMER [Concomitant]
     Active Substance: SEVELAMER
     Dosage: 800 MG, 2X/DAY
  12. COLECALCIFEROL [Concomitant]
     Active Substance: CHOLECALCIFEROL
     Dosage: 625 ?G, WEEKLY
  13. CIPROFLOXACIN HCL [Interacting]
     Active Substance: CIPROFLOXACIN HYDROCHLORIDE
     Indication: PERITONITIS
     Dosage: 500 MG, 2X/DAY
  14. FUROSEMIDE. [Concomitant]
     Active Substance: FUROSEMIDE
     Dosage: 125 MG, 2X/DAY

REACTIONS (2)
  - Rhabdomyolysis [Recovered/Resolved]
  - Drug interaction [Recovered/Resolved]
